FAERS Safety Report 4310388-8 (Version None)
Quarter: 2004Q1

REPORT INFORMATION
  Report Type: 
  Country: None (occurrence: None)
  Receive Date: 20040302
  Receipt Date: 20040213
  Transmission Date: 20041129
  Serious: Yes (Hospitalization)
  Sender: FDA-Public Use
  Company Number: F01200400036

PATIENT
  Age: 53 Year
  Sex: Male

DRUGS (9)
  1. OXALIPLATIN [Suspect]
     Indication: PANCREATIC CARCINOMA
     Dosage: 100 MG/M2 ON DAY 2 EVERY TWO WEEKS
     Route: 042
     Dates: start: 20031017, end: 20031017
  2. GEMZAR [Suspect]
     Dosage: 1000 MG/M2 ON DAY 1 EVERY TWO WEEKS
     Route: 042
  3. DEPAMIDE (VALPROMIDE) [Concomitant]
  4. CLOZAPINE [Concomitant]
  5. CREON [Concomitant]
  6. OMEPRAZOLE [Concomitant]
  7. FORLAX (MACROGOL) [Concomitant]
  8. DIANTALVIC [Concomitant]
  9. ALDACTONE [Concomitant]

REACTIONS (4)
  - ANTI-HBS ANTIBODY POSITIVE [None]
  - HEPATIC FIBROSIS [None]
  - HEPATIC STEATOSIS [None]
  - HEPATITIS CHRONIC ACTIVE [None]
